FAERS Safety Report 7248243-6 (Version None)
Quarter: 2011Q1

REPORT INFORMATION
  Report Type: 
  Country: None (occurrence: None)
  Receive Date: 20110127
  Receipt Date: 20101213
  Transmission Date: 20110831
  Serious: Yes (Other)
  Sender: FDA-Public Use
  Company Number: US-BAYER-US-2004-034637

PATIENT
  Sex: Female
  Weight: 64 kg

DRUGS (8)
  1. PROVERA [Suspect]
     Indication: MENOPAUSAL SYMPTOMS
     Dates: start: 19970101, end: 20010615
  2. ADVAIR [Concomitant]
     Indication: ASTHMA
     Dosage: UNK, UNK
     Dates: start: 19990101
  3. DIET FORMULATIONS FOR TREATMENT OF OBESITY [Concomitant]
  4. PREMPRO [Suspect]
     Indication: MENOPAUSAL SYMPTOMS
     Dates: start: 19970101, end: 20010615
  5. COMBIVENT [Concomitant]
     Indication: ASTHMA
     Dosage: UNK, UNK
  6. CLIMARA [Suspect]
     Indication: MENOPAUSAL SYMPTOMS
     Dosage: .1 MG/D, CONT
     Route: 062
     Dates: start: 19970606, end: 20010515
  7. NEXIUM [Concomitant]
     Indication: ASTHMA
     Dosage: UNK, UNK
     Dates: start: 19990101
  8. ALLEGRA [Concomitant]
     Indication: ASTHMA
     Dosage: UNK, UNK
     Dates: start: 19990101

REACTIONS (2)
  - DEPRESSION [None]
  - BREAST CANCER STAGE II [None]
